FAERS Safety Report 6493010-4 (Version None)
Quarter: 2009Q4

REPORT INFORMATION
  Report Type: 
  Country: None (occurrence: None)
  Receive Date: 20091211
  Receipt Date: 20091211
  Transmission Date: 20100525
  Serious: Yes (Hospitalization)
  Sender: FDA-Public Use
  Company Number: None

PATIENT
  Sex: Female
  Weight: 102.9 kg

DRUGS (2)
  1. DAPTOMYCIN [Suspect]
     Indication: POST PROCEDURAL INFECTION
     Dosage: 750 MG Q24 HOURS IV
     Route: 042
     Dates: start: 20091201, end: 20091209
  2. DAPTOMYCIN [Suspect]
     Indication: STAPHYLOCOCCAL INFECTION
     Dosage: 750 MG Q24 HOURS IV
     Route: 042
     Dates: start: 20091201, end: 20091209

REACTIONS (2)
  - PAIN [None]
  - RHABDOMYOLYSIS [None]
